FAERS Safety Report 7364914-5 (Version None)
Quarter: 2011Q1

REPORT INFORMATION
  Report Type: 
  Country: None (occurrence: None)
  Receive Date: 20110321
  Receipt Date: 20110310
  Transmission Date: 20110831
  Serious: Yes (Other)
  Sender: FDA-Public Use
  Company Number: US-ASTRAZENECA-2011SE13734

PATIENT
  Age: 53 Year
  Sex: Male

DRUGS (2)
  1. PRILOSEC [Suspect]
     Route: 048
  2. NEXIUM [Suspect]
     Route: 048

REACTIONS (5)
  - NEUROPATHY PERIPHERAL [None]
  - DIABETES MELLITUS [None]
  - GUILLAIN-BARRE SYNDROME [None]
  - TREMOR [None]
  - DRUG INEFFECTIVE [None]
